FAERS Safety Report 12767745 (Version 5)
Quarter: 2016Q4

REPORT INFORMATION
  Report Type: Report from Study
  Country: US (occurrence: US)
  Receive Date: 20160921
  Receipt Date: 20161104
  Transmission Date: 20170207
  Serious: Yes (Hospitalization, Other)
  Sender: FDA-Public Use
  Company Number: US-ACTELION-A-US2014-103841

PATIENT
  Age: 53 Year
  Sex: Female

DRUGS (18)
  1. LYRICA [Concomitant]
     Active Substance: PREGABALIN
     Dosage: 75 MG, BID
  2. ASPIRIN. [Concomitant]
     Active Substance: ASPIRIN
  3. PREDNISONE. [Concomitant]
     Active Substance: PREDNISONE
  4. NEURONTIN [Concomitant]
     Active Substance: GABAPENTIN
     Dosage: 800 MG, TID
  5. VELETRI [Suspect]
     Active Substance: EPOPROSTENOL
     Dosage: 77 NG/KG, PER MIN
     Route: 042
  6. HYDROXYCHLOROQUINE [Concomitant]
     Active Substance: HYDROXYCHLOROQUINE
     Dosage: 200 MG, QD
  7. MVI [Concomitant]
     Active Substance: VITAMINS
  8. BENAZEPRIL [Concomitant]
     Active Substance: BENAZEPRIL HYDROCHLORIDE
  9. SILDENAFIL. [Concomitant]
     Active Substance: SILDENAFIL
     Dosage: 20 MG, TID
  10. HEPARIN [Concomitant]
     Active Substance: HEPARIN SODIUM
  11. MAGNESIUM OXIDE. [Concomitant]
     Active Substance: MAGNESIUM OXIDE
  12. OMEPRAZOLE. [Concomitant]
     Active Substance: OMEPRAZOLE
  13. MULTIVITAMIN [Concomitant]
     Active Substance: VITAMINS
     Dosage: UNK
  14. METHYLPREDISOLONE [Concomitant]
     Active Substance: METHYLPREDNISOLONE
  15. VELETRI [Suspect]
     Active Substance: EPOPROSTENOL
     Indication: PULMONARY HYPERTENSION
     Dosage: 30 NG/KG, PER MIN
     Route: 042
     Dates: start: 20140723
  16. VELETRI [Suspect]
     Active Substance: EPOPROSTENOL
     Dosage: 41 NG/KG, PER MIN
     Route: 042
  17. OXYGEN. [Concomitant]
     Active Substance: OXYGEN
  18. RANITIDINE. [Concomitant]
     Active Substance: RANITIDINE
     Dosage: UNK, QD

REACTIONS (11)
  - Nausea [Unknown]
  - Frequent bowel movements [Unknown]
  - Device related sepsis [Recovered/Resolved]
  - Staphylococcus test positive [Recovered/Resolved]
  - Pain in extremity [Unknown]
  - Pain in jaw [Unknown]
  - Device infusion issue [Unknown]
  - Spinal cord abscess [Recovered/Resolved]
  - Weight decreased [Unknown]
  - Vomiting [Unknown]
  - Diarrhoea [Unknown]
